FAERS Safety Report 9449705 (Version 1)
Quarter: 2013Q3

REPORT INFORMATION
  Report Type: Spontaneous
  Country: BR (occurrence: BR)
  Receive Date: 20130809
  Receipt Date: 20130809
  Transmission Date: 20140515
  Serious: Yes (Other)
  Sender: FDA-Public Use
  Company Number: BR-SANOFI-AVENTIS-2013SA077717

PATIENT
  Age: 59 Year
  Sex: Male
  Weight: 87 kg

DRUGS (9)
  1. LANTUS [Suspect]
     Indication: TYPE 1 DIABETES MELLITUS
     Route: 058
     Dates: start: 2003
  2. MERITOR [Concomitant]
     Indication: TYPE 1 DIABETES MELLITUS
  3. TRAYENTA [Concomitant]
     Indication: TYPE 1 DIABETES MELLITUS
  4. PRASUGREL [Concomitant]
  5. SOMALGIN CARDIO [Concomitant]
  6. ATORVASTATIN CALCIUM [Concomitant]
  7. CARVEDILOL [Concomitant]
  8. MICARDIS HCT [Concomitant]
  9. DEVICE NOS [Concomitant]
     Indication: DEVICE THERAPY
     Dates: start: 2003

REACTIONS (4)
  - Myocardial infarction [Recovered/Resolved]
  - Hyperhidrosis [Recovered/Resolved]
  - Hypoaesthesia [Recovered/Resolved]
  - Chest pain [Recovered/Resolved]
